FAERS Safety Report 18629153 (Version 1)
Quarter: 2020Q4

REPORT INFORMATION
  Report Type: Report from Study
  Country: CA (occurrence: CA)
  Receive Date: 20201217
  Receipt Date: 20201217
  Transmission Date: 20210114
  Serious: Yes (Other)
  Sender: FDA-Public Use
  Company Number: CA-TAKEDA-2020TUS039115

PATIENT
  Age: 39 Year
  Sex: Female

DRUGS (4)
  1. IXAZOMIB [Suspect]
     Active Substance: IXAZOMIB
     Indication: POEMS SYNDROME
     Dosage: 3 MILLIGRAM
     Route: 048
     Dates: start: 20200401
  2. IXAZOMIB [Suspect]
     Active Substance: IXAZOMIB
     Dosage: 2.3 MILLIGRAM
     Route: 048
     Dates: start: 20200424, end: 20201020
  3. IXAZOMIB [Suspect]
     Active Substance: IXAZOMIB
     Dosage: 2.3 MILLIGRAM
     Route: 048
  4. IXAZOMIB [Suspect]
     Active Substance: IXAZOMIB
     Dosage: 3 MILLIGRAM
     Route: 048
     Dates: start: 20201020, end: 20201215

REACTIONS (5)
  - Pain [Unknown]
  - Paraesthesia [Unknown]
  - Headache [Recovering/Resolving]
  - Neuropathy peripheral [Unknown]
  - Hypoaesthesia [Unknown]
